FAERS Safety Report 5309797-X (Version None)
Quarter: 2007Q2

REPORT INFORMATION
  Report Type: 
  Country: None (occurrence: None)
  Receive Date: 20070427
  Receipt Date: 20060526
  Transmission Date: 20071010
  Serious: No
  Sender: FDA-Public Use
  Company Number: US-GLAXOSMITHKLINE-A0606036A

PATIENT
  Age: 48 Year
  Sex: Female
  Weight: 77.3 kg

DRUGS (7)
  1. ZOFRAN [Suspect]
     Indication: PROPHYLAXIS OF NAUSEA AND VOMITING
     Dosage: 8MG THREE TIMES PER DAY
     Route: 048
     Dates: start: 20060101, end: 20060101
  2. EPIRUBICIN [Concomitant]
     Indication: CHEMOTHERAPY
     Route: 042
     Dates: start: 20060101
  3. FLUOROURACIL [Concomitant]
     Indication: CHEMOTHERAPY
     Route: 042
     Dates: start: 20060101
  4. CYCLOPHOSPHAMIDE [Concomitant]
     Indication: CHEMOTHERAPY
     Route: 042
     Dates: start: 20060101
  5. DEXAMETHASONE 0.5MG TAB [Concomitant]
     Route: 048
     Dates: start: 20060101
  6. ACYCLOVIR [Concomitant]
     Dosage: 200MG TWICE PER DAY
     Route: 048
     Dates: start: 20060101
  7. MAXALT [Concomitant]
     Dosage: 10MG AS REQUIRED
     Route: 048

REACTIONS (1)
  - DYSGEUSIA [None]
